FAERS Safety Report 15857255 (Version 2)
Quarter: 2020Q1

REPORT INFORMATION
  Report Type: Spontaneous
  Country: US (occurrence: US)
  Receive Date: 20190123
  Receipt Date: 20200309
  Transmission Date: 20200409
  Serious: Yes (Hospitalization, Other)
  Sender: FDA-Public Use
  Company Number: US-TORRENT-00007494

PATIENT
  Age: 68 Year
  Sex: Male
  Weight: 83 kg

DRUGS (5)
  1. AMLODIPINE [Concomitant]
     Active Substance: AMLODIPINE BESYLATE
     Indication: HYPERTENSION
     Dosage: DAILY
  2. LOSARTAN. [Suspect]
     Active Substance: LOSARTAN
     Indication: HYPERTENSION
     Dosage: TAKING DAILY FROM SEVERAL YEARS
  3. ATORVASTATIN [Concomitant]
     Active Substance: ATORVASTATIN
     Indication: DYSLIPIDAEMIA
     Dosage: DAILY
  4. CARVEDILOL. [Concomitant]
     Active Substance: CARVEDILOL
     Indication: HYPERTENSION
     Dosage: TWICE DAILY
  5. METFORMIN [Concomitant]
     Active Substance: METFORMIN HYDROCHLORIDE
     Indication: DIABETES MELLITUS
     Dosage: TWO TIMES A DAY

REACTIONS (5)
  - Myocardial infarction [Unknown]
  - Neoplasm malignant [Not Recovered/Not Resolved]
  - Surgery [Unknown]
  - Coronary artery occlusion [Unknown]
  - Rash [Unknown]

NARRATIVE: CASE EVENT DATE: 2015
